FAERS Safety Report 23525014 (Version 1)
Quarter: 2024Q1

REPORT INFORMATION
  Report Type: Spontaneous
  Country: GB (occurrence: GB)
  Receive Date: 20240215
  Receipt Date: 20240215
  Transmission Date: 20240410
  Serious: Yes (Other)
  Sender: FDA-Public Use
  Company Number: None

PATIENT
  Age: 71 Year

DRUGS (1)
  1. LEVOFLOXACIN [Suspect]
     Active Substance: LEVOFLOXACIN
     Indication: Drug hypersensitivity
     Route: 065
     Dates: start: 20231129, end: 20231202

REACTIONS (1)
  - Tonic convulsion [Recovering/Resolving]

NARRATIVE: CASE EVENT DATE: 20231207
